FAERS Safety Report 10187771 (Version 1)
Quarter: 2014Q2

REPORT INFORMATION
  Report Type: Spontaneous
  Country: US (occurrence: US)
  Receive Date: 20140522
  Receipt Date: 20140522
  Transmission Date: 20141212
  Serious: No
  Sender: FDA-Public Use
  Company Number: US-SANOFI-AVENTIS-2013SA090213

PATIENT
  Age: 52 Year
  Sex: Male

DRUGS (4)
  1. SOLOSTAR [Suspect]
     Dosage: APPROX ONE YEAR
  2. LANTUS SOLOSTAR [Suspect]
     Dosage: APPROX ONE YEAR DOSE:80 UNIT(S)
     Route: 051
  3. GLIPIZIDE [Concomitant]
  4. HUMALOG [Concomitant]
     Dosage: DOSE:75 UNIT(S)
     Route: 065

REACTIONS (1)
  - Injection site injury [Unknown]
